FAERS Safety Report 18338204 (Version 1)
Quarter: 2020Q4

REPORT INFORMATION
  Report Type: Spontaneous
  Country: US (occurrence: US)
  Receive Date: 20201002
  Receipt Date: 20201002
  Transmission Date: 20210113
  Serious: No
  Sender: FDA-Public Use
  Company Number: US-GLAXOSMITHKLINE-US2020AMR192398

PATIENT
  Sex: Male

DRUGS (1)
  1. NUCALA [Suspect]
     Active Substance: MEPOLIZUMAB
     Indication: CHRONIC OBSTRUCTIVE PULMONARY DISEASE
     Dosage: 100 MG, CYC
     Route: 065
     Dates: start: 20200811

REACTIONS (3)
  - Dizziness [Unknown]
  - Product use in unapproved indication [Unknown]
  - Dyspnoea [Unknown]
